FAERS Safety Report 6588384-X (Version None)
Quarter: 2010Q1

REPORT INFORMATION
  Report Type: 
  Country: None (occurrence: None)
  Receive Date: 20100218
  Receipt Date: 20091112
  Transmission Date: 20100710
  Serious: No
  Sender: FDA-Public Use
  Company Number: US-ALLERGAN-0912709US

PATIENT
  Age: 37 Year
  Sex: Female

DRUGS (8)
  1. BOTOX [Suspect]
     Indication: MIGRAINE
     Dosage: 225 UNITS, SINGLE
     Route: 030
     Dates: start: 20090824, end: 20090824
  2. BOTOX [Suspect]
     Indication: DYSTONIA
  3. FLEXERIL [Concomitant]
  4. LOESTRIN 1.5/30 [Concomitant]
  5. MOBIC [Concomitant]
  6. VICODIN [Concomitant]
  7. NEURONTIN [Concomitant]
  8. PAMELOR [Concomitant]

REACTIONS (1)
  - MUSCULAR WEAKNESS [None]
